FAERS Safety Report 9180235 (Version 2)
Quarter: 2013Q3

REPORT INFORMATION
  Report Type: Spontaneous
  Country: FR (occurrence: FR)
  Receive Date: 20130322
  Receipt Date: 20130712
  Transmission Date: 20140515
  Serious: Yes (Hospitalization)
  Sender: FDA-Public Use
  Company Number: FR-RANBAXY-2013RR-66560

PATIENT
  Age: 44 Year
  Sex: Female

DRUGS (3)
  1. AMOXICILLIN [Suspect]
     Indication: LUNG DISORDER
     Dosage: UNK
     Route: 048
     Dates: start: 20130202, end: 20130206
  2. AUGMENTIN [Suspect]
     Indication: LUNG DISORDER
     Dosage: UNK
     Route: 042
     Dates: start: 20130207, end: 20130210
  3. AUGMENTIN [Suspect]
     Indication: LUNG DISORDER
     Dosage: UNK
     Route: 048
     Dates: start: 20130210, end: 20130211

REACTIONS (1)
  - Cholestasis [Recovered/Resolved]
